FAERS Safety Report 25390123 (Version 1)
Quarter: 2025Q2

REPORT INFORMATION
  Report Type: Spontaneous
  Country: NL (occurrence: NL)
  Receive Date: 20250603
  Receipt Date: 20250603
  Transmission Date: 20250717
  Serious: Yes (Hospitalization)
  Sender: MERCK SHARP & DOHME LLC
  Company Number: None

PATIENT
  Age: 60 Year
  Sex: Female
  Weight: 62.3 kg

DRUGS (13)
  1. PEMBROLIZUMAB [Suspect]
     Active Substance: PEMBROLIZUMAB
     Indication: Lung cancer metastatic
     Dates: start: 20250310, end: 20250423
  2. ATORVASTATIN [Concomitant]
     Active Substance: ATORVASTATIN
     Route: 048
  3. FOLIC ACID TABLET 0.5MG / Brand name not specified [Concomitant]
     Route: 048
  4. INSULIN DEGLUDEC 100U/ML INJVLST / Brand name not specified [Concomitant]
  5. GLUCAGON NOSE POWDER 3MG / Brand name not specified [Concomitant]
     Route: 045
  6. ACETYLSALICYLIC ACID TABLET 80MG / Brand name not specified [Concomitant]
     Route: 048
  7. INSULIN LISPRO 100U/ML INJVLST / Brand name not specified [Concomitant]
  8. LEVETIRACETAM [Concomitant]
     Active Substance: LEVETIRACETAM
     Route: 048
  9. PANTOPRAZOLE TABLET gastric acid resistant 20MG / Brand name not sp... [Concomitant]
     Route: 048
  10. MAGNESIUM HYDROXIDE CHEWABLE TABLET 724MG / Brand name not specified [Concomitant]
     Route: 048
  11. CARBOPLATIN [Suspect]
     Active Substance: CARBOPLATIN
     Indication: Lung cancer metastatic
     Dates: start: 20250310, end: 20250423
  12. PEMETREXED [Suspect]
     Active Substance: PEMETREXED
     Indication: Lung cancer metastatic
     Dates: start: 20250310, end: 20250423
  13. HYDROXOCOBALAMINE injection fluid 500UG/ML (HCL) / Brand name not s... [Concomitant]

REACTIONS (1)
  - Renal failure [Recovering/Resolving]
